FAERS Safety Report 5424330-X (Version None)
Quarter: 2007Q3

REPORT INFORMATION
  Report Type: 
  Country: None (occurrence: None)
  Receive Date: 20070731
  Receipt Date: 20070601
  Transmission Date: 20080115
  Serious: No
  Sender: FDA-Public Use
  Company Number: US200706000535

PATIENT
  Age: 57 Year
  Sex: Female
  Weight: 61.7 kg

DRUGS (4)
  1. BYETTA [Suspect]
     Indication: TYPE 2 DIABETES MELLITUS
     Dosage: 5 UG, 2/D, SUBCUTANEOUS, 10 UG, 2/D, SUBCUTANEOUS
     Route: 058
     Dates: start: 20070301, end: 20070528
  2. BYETTA [Suspect]
     Indication: TYPE 2 DIABETES MELLITUS
     Dosage: 5 UG, 2/D, SUBCUTANEOUS, 10 UG, 2/D, SUBCUTANEOUS
     Route: 058
     Dates: start: 20070529
  3. EXENATIDE (EXENATIDE) [Concomitant]
  4. METFORMIN HCL [Concomitant]

REACTIONS (4)
  - BLOOD CHOLESTEROL DECREASED [None]
  - DECREASED APPETITE [None]
  - NAUSEA [None]
  - WEIGHT DECREASED [None]
